FAERS Safety Report 14500242 (Version 2)
Quarter: 2018Q1

REPORT INFORMATION
  Report Type: Report from Study
  Country: US (occurrence: US)
  Receive Date: 20180207
  Receipt Date: 20180227
  Transmission Date: 20180509
  Serious: Yes (Other)
  Sender: FDA-Public Use
  Company Number: US-JAZZ-2018-US-000145

PATIENT
  Sex: Female

DRUGS (5)
  1. XYREM [Suspect]
     Active Substance: SODIUM OXYBATE
     Dosage: DOSE ADJUSTMENT
     Route: 048
     Dates: start: 201801, end: 201801
  2. TIZANIDINE. [Suspect]
     Active Substance: TIZANIDINE
     Indication: PRODUCT USED FOR UNKNOWN INDICATION
     Dosage: 4 MG, BID
  3. XYREM [Suspect]
     Active Substance: SODIUM OXYBATE
     Dosage: 4.5 G, BID
     Route: 048
     Dates: start: 201801
  4. GABAPENTIN. [Suspect]
     Active Substance: GABAPENTIN
     Indication: PRODUCT USED FOR UNKNOWN INDICATION
     Dosage: DOSE INCREASED TO 600MG THREE TIMES
  5. XYREM [Suspect]
     Active Substance: SODIUM OXYBATE
     Indication: NARCOLEPSY
     Dosage: 2.25 G, BID
     Route: 048
     Dates: start: 20171230, end: 201801

REACTIONS (17)
  - Nerve compression [Unknown]
  - Sleep apnoea syndrome [Not Recovered/Not Resolved]
  - Nausea [Not Recovered/Not Resolved]
  - Sleep attacks [Not Recovered/Not Resolved]
  - Nightmare [Recovered/Resolved]
  - Diarrhoea [Not Recovered/Not Resolved]
  - Fibromyalgia [Not Recovered/Not Resolved]
  - Incontinence [Unknown]
  - Feeling drunk [Not Recovered/Not Resolved]
  - Memory impairment [Not Recovered/Not Resolved]
  - Altered state of consciousness [Unknown]
  - Bipolar disorder [Not Recovered/Not Resolved]
  - Balance disorder [Unknown]
  - Heart rate increased [Recovering/Resolving]
  - Decreased appetite [Not Recovered/Not Resolved]
  - Sedation [Not Recovered/Not Resolved]
  - Paranoia [Recovered/Resolved]
